FAERS Safety Report 7903318 (Version 3)
Quarter: 2013Q3

REPORT INFORMATION
  Report Type: Spontaneous
  Country: US (occurrence: US)
  Receive Date: 20110418
  Receipt Date: 20130717
  Transmission Date: 20140515
  Serious: Yes (Hospitalization, Other)
  Sender: FDA-Public Use
  Company Number: US-BAYER-201038357NA

PATIENT
  Age: 39 Year
  Sex: Female
  Weight: 172.34 kg

DRUGS (19)
  1. YASMIN [Suspect]
     Indication: ACNE
     Dosage: UNK
     Dates: start: 20030224, end: 2004
  2. YASMIN [Suspect]
     Indication: PREMENSTRUAL SYNDROME
  3. YASMIN [Suspect]
     Indication: PREMENSTRUAL DYSPHORIC DISORDER
  4. ZOCOR [Concomitant]
     Dosage: UNK
     Dates: start: 20030928
  5. ZOCOR [Concomitant]
     Dosage: UNK
     Dates: start: 20090401
  6. MOBIC [Concomitant]
     Dosage: UNK
     Dates: start: 20030808
  7. LISINOPRIL/HCTZ [Concomitant]
     Dosage: UNK
     Dates: start: 20030508
  8. LISINOPRIL/HCTZ [Concomitant]
     Dosage: UNK
     Dates: start: 20030603
  9. ACTOS [Concomitant]
  10. SEREVENT INHALER [Concomitant]
  11. SYNTHROID [Concomitant]
     Dosage: 200 MG, UNK
  12. PRILOSEC [Concomitant]
     Dosage: 20 MG, UNK
  13. GLUCOTROL XL [Concomitant]
     Dosage: 10 MG, UNK
  14. FLOVENT [Concomitant]
     Dosage: 440 MG, UNK
  15. GLUCOPHAGE [Concomitant]
     Dosage: 1000 MG, UNK
  16. ALBUTEROL INHALER [Concomitant]
  17. DARVOCET-N [Concomitant]
     Dosage: 100 MG, UNK
  18. PRECARE [Concomitant]
     Dosage: UNK, DAILY
  19. MEDROXYPROGESTERONE [Concomitant]
     Dosage: 10 MG, UNK

REACTIONS (6)
  - Injury [None]
  - Cardiac disorder [None]
  - Panic attack [None]
  - Heart rate increased [None]
  - Pulmonary thrombosis [None]
  - Deep vein thrombosis [None]
